FAERS Safety Report 13506067 (Version 1)
Quarter: 2017Q2

REPORT INFORMATION
  Report Type: Spontaneous
  Country: US (occurrence: US)
  Receive Date: 20170502
  Receipt Date: 20170502
  Transmission Date: 20170830
  Serious: Yes (Life-Threatening)
  Sender: FDA-Public Use
  Company Number: US-ROCHE-1476753

PATIENT
  Age: 74 Year
  Sex: Female
  Weight: 75.3 kg

DRUGS (1)
  1. AVASTIN [Suspect]
     Active Substance: BEVACIZUMAB
     Indication: OVARIAN CANCER
     Route: 042
     Dates: start: 20140109, end: 20140911

REACTIONS (5)
  - Malaise [Unknown]
  - Aphasia [Unknown]
  - Transient ischaemic attack [Recovered/Resolved]
  - Fall [Unknown]
  - Cough [Unknown]

NARRATIVE: CASE EVENT DATE: 20140909
